FAERS Safety Report 8485984-7 (Version None)
Quarter: 2012Q3

REPORT INFORMATION
  Report Type: 
  Country: None (occurrence: None)
  Receive Date: 20120703
  Receipt Date: 20120618
  Transmission Date: 20120928
  Serious: No
  Sender: FDA-Public Use
  Company Number: US-ASTRAZENECA-2012SE41100

PATIENT
  Age: 49 Year
  Sex: Male

DRUGS (2)
  1. NEXIUM [Concomitant]
  2. TOPROL-XL [Suspect]
     Route: 048

REACTIONS (2)
  - HYPERTENSION [None]
  - INCORRECT DRUG DOSAGE FORM ADMINISTERED [None]
